FAERS Safety Report 18474452 (Version 4)
Quarter: 2022Q4

REPORT INFORMATION
  Report Type: Report from Study
  Country: US (occurrence: None)
  Receive Date: 20201106
  Receipt Date: 20221107
  Transmission Date: 20230113
  Serious: No
  Sender: FDA-Public Use
  Company Number: US-MERCK KGAA-7116377

PATIENT
  Age: 43 Year
  Sex: Male
  Weight: 127 kg

DRUGS (2)
  1. REBIF [Suspect]
     Active Substance: INTERFERON BETA-1A
     Indication: Multiple sclerosis
     Route: 058
     Dates: start: 2011
  2. REBIF [Suspect]
     Active Substance: INTERFERON BETA-1A
     Dosage: PREVIOUSLY PREFILLED SYRINGE AND REBIJECT II
     Route: 058
     Dates: start: 20120115

REACTIONS (8)
  - Injection site pain [Unknown]
  - Headache [Unknown]
  - Depression [Not Recovered/Not Resolved]
  - Feeling abnormal [Not Recovered/Not Resolved]
  - Euphoric mood [Not Recovered/Not Resolved]
  - Vision blurred [Not Recovered/Not Resolved]
  - Peroneal nerve palsy [Not Recovered/Not Resolved]
  - Night sweats [Not Recovered/Not Resolved]

NARRATIVE: CASE EVENT DATE: 20200101
